FAERS Safety Report 5628036-3 (Version None)
Quarter: 2008Q1

REPORT INFORMATION
  Report Type: 
  Country: None (occurrence: None)
  Receive Date: 20080215
  Receipt Date: 20080206
  Transmission Date: 20080703
  Serious: Yes (Hospitalization, Other)
  Sender: FDA-Public Use
  Company Number: US-ELI_LILLY_AND_COMPANY-US200801001115

PATIENT
  Sex: Female

DRUGS (8)
  1. BYETTA [Suspect]
     Dosage: 5 UG, 2/D
     Route: 058
     Dates: start: 20071231, end: 20080102
  2. BYETTA [Suspect]
     Dosage: 5 UG, DAILY (1/D)
     Route: 058
     Dates: start: 20080102, end: 20080117
  3. GLUCOPHAGE XR [Concomitant]
     Dosage: UNK, UNKNOWN
     Dates: start: 20061101, end: 20071220
  4. XANAX [Concomitant]
     Indication: PANIC DISORDER
     Dosage: 1 MG, UNKNOWN
     Dates: start: 19980831
  5. XANAX [Concomitant]
     Dosage: 3 MG, UNKNOWN
     Dates: start: 20070501
  6. ELAVIL [Concomitant]
     Indication: MIGRAINE
     Dosage: 25 MG, UNKNOWN
     Dates: start: 20050101
  7. RHINOCORT [Concomitant]
     Indication: HYPERSENSITIVITY
     Dosage: UNK, UNKNOWN
     Route: 055
     Dates: start: 20020101
  8. ZOCOR [Concomitant]
     Indication: HYPERCHOLESTEROLAEMIA
     Dosage: 5 MG, UNKNOWN
     Dates: start: 19960101

REACTIONS (7)
  - BLOOD GLUCOSE DECREASED [None]
  - DIZZINESS [None]
  - IRRITABILITY [None]
  - NAUSEA [None]
  - NERVOUS SYSTEM DISORDER [None]
  - PALPITATIONS [None]
  - SOMNOLENCE [None]
